FAERS Safety Report 12067657 (Version 1)
Quarter: 2016Q1

REPORT INFORMATION
  Report Type: Spontaneous
  Country: US (occurrence: US)
  Receive Date: 20160211
  Receipt Date: 20160211
  Transmission Date: 20160526
  Serious: No
  Sender: FDA-Public Use
  Company Number: US-G+W LABORATORIES-1047673

PATIENT
  Age: 79 Year
  Sex: Female

DRUGS (1)
  1. CLOBETASOL PROPIONATE. [Suspect]
     Active Substance: CLOBETASOL PROPIONATE
     Indication: VULVOVAGINAL DISCOMFORT
     Route: 061
     Dates: start: 201512, end: 201512

REACTIONS (8)
  - Vulvovaginal burning sensation [Recovering/Resolving]
  - Dysuria [Recovering/Resolving]
  - Gait disturbance [Recovering/Resolving]
  - Off label use [Recovered/Resolved]
  - Vulvovaginal pain [Recovering/Resolving]
  - Vulvovaginal discomfort [Recovering/Resolving]
  - Vulvovaginal pruritus [Recovering/Resolving]
  - Condition aggravated [None]

NARRATIVE: CASE EVENT DATE: 201512
